FAERS Safety Report 18413231 (Version 2)
Quarter: 2020Q4

REPORT INFORMATION
  Report Type: Spontaneous
  Country: US (occurrence: US)
  Receive Date: 20201021
  Receipt Date: 20201120
  Transmission Date: 20210114
  Serious: No
  Sender: FDA-Public Use
  Company Number: US-ASTRAZENECA-2020SF31095

PATIENT
  Sex: Female
  Weight: 73.9 kg

DRUGS (3)
  1. PULMICORT FLEXHALER [Suspect]
     Active Substance: BUDESONIDE
     Indication: ASTHMA
     Dosage: 2 PUFF IN MORNING, DAILY
     Route: 055
  2. ALBUTEROL. [Concomitant]
     Active Substance: ALBUTEROL
  3. SYMBICORT [Suspect]
     Active Substance: BUDESONIDE\FORMOTEROL FUMARATE DIHYDRATE
     Dosage: UNKNOWN DOSE, AS REQUIRED AS REQUIRED
     Route: 055

REACTIONS (14)
  - Post-traumatic stress disorder [Unknown]
  - Circumstance or information capable of leading to medication error [Unknown]
  - Off label use [Unknown]
  - Intentional product misuse [Unknown]
  - Bronchitis [Unknown]
  - Fall [Unknown]
  - Nervous system disorder [Unknown]
  - Dysgeusia [Unknown]
  - Device issue [Unknown]
  - Atypical pneumonia [Unknown]
  - Asthma [Unknown]
  - Nasopharyngitis [Unknown]
  - Body height decreased [Unknown]
  - Intentional device misuse [Unknown]
